FAERS Safety Report 15318365 (Version 1)
Quarter: 2018Q3

REPORT INFORMATION
  Report Type: Spontaneous
  Country: US (occurrence: US)
  Receive Date: 20180817
  Receipt Date: 20180817
  Transmission Date: 20181010
  Serious: Yes (Hospitalization)
  Sender: FDA-Public Use
  Company Number: None

PATIENT
  Sex: Female

DRUGS (9)
  1. METFORMIN [Concomitant]
     Active Substance: METFORMIN HYDROCHLORIDE
  2. IBRANCE [Suspect]
     Active Substance: PALBOCICLIB
     Indication: BREAST CANCER
     Route: 048
     Dates: start: 20180630
  3. ASPIRIN. [Concomitant]
     Active Substance: ASPIRIN
  4. LETROZOLE. [Concomitant]
     Active Substance: LETROZOLE
  5. ACETAMIN [Concomitant]
     Active Substance: ACETAMINOPHEN
  6. VITAMIN D [Concomitant]
     Active Substance: CHOLECALCIFEROL
  7. FENTANYL. [Concomitant]
     Active Substance: FENTANYL
  8. TRAMADOL. [Concomitant]
     Active Substance: TRAMADOL
  9. CITALOPRAM [Concomitant]
     Active Substance: CITALOPRAM HYDROBROMIDE

REACTIONS (2)
  - Hip surgery [None]
  - Eating disorder [None]
